FAERS Safety Report 24202068 (Version 1)
Quarter: 2024Q3

REPORT INFORMATION
  Report Type: Report from Study
  Country: CA (occurrence: CA)
  Receive Date: 20240812
  Receipt Date: 20240812
  Transmission Date: 20241017
  Serious: Yes (Hospitalization, Other)
  Sender: HLS THERAPEUTICS
  Company Number: CA-HLS-202401522

PATIENT
  Age: 39 Year
  Sex: Female

DRUGS (4)
  1. CLOZARIL [Suspect]
     Active Substance: CLOZAPINE
     Indication: Product used for unknown indication
     Route: 065
  2. CLOZARIL [Suspect]
     Active Substance: CLOZAPINE
     Indication: Product used for unknown indication
     Route: 048
     Dates: start: 20231205, end: 20240616
  3. CLOZARIL [Suspect]
     Active Substance: CLOZAPINE
     Indication: Product used for unknown indication
     Dosage: RESTARTED DRUG ON WEEKEND WITHOUT BEING ENROLLED IN CSAN.
     Route: 048
  4. PANTOPRAZOLE [Concomitant]
     Active Substance: PANTOPRAZOLE
     Indication: Product used for unknown indication
     Route: 065

REACTIONS (10)
  - Neutropenia [Recovered/Resolved]
  - Therapy interrupted [Recovered/Resolved]
  - Dehydration [Unknown]
  - Fatigue [Unknown]
  - Iron deficiency anaemia [Unknown]
  - Nausea [Unknown]
  - Decreased appetite [Unknown]
  - Psychotic disorder [Unknown]
  - Adverse drug reaction [Unknown]
  - Treatment noncompliance [Unknown]

NARRATIVE: CASE EVENT DATE: 20240624
